FAERS Safety Report 8185841 (Version 2)
Quarter: 2013Q3

REPORT INFORMATION
  Report Type: Report from Study
  Country: MX (occurrence: MX)
  Receive Date: 20111018
  Receipt Date: 20130719
  Transmission Date: 20140515
  Serious: Yes (Other)
  Sender: FDA-Public Use
  Company Number: PHHY2011MX88035

PATIENT
  Age: 69 Year
  Sex: Female

DRUGS (2)
  1. EXFORGE HCT [Suspect]
     Indication: HYPERTENSION
     Dosage: 1 DF, DAILY (160 MG VALS/5 MG AMLO/12.5 MG HYDR)
     Dates: start: 20110228, end: 201103
  2. EXFORGE HCT [Suspect]
     Dosage: 1 DF, DAILY (75 MG)
     Dates: start: 201103, end: 201103

REACTIONS (5)
  - Infarction [Recovered/Resolved]
  - Hypertension [Recovered/Resolved]
  - Tremor [Recovered/Resolved]
  - Feeling abnormal [Recovered/Resolved]
  - Drug prescribing error [Unknown]
